FAERS Safety Report 5644120-2 (Version None)
Quarter: 2008Q1

REPORT INFORMATION
  Report Type: 
  Country: None (occurrence: None)
  Receive Date: 20080226
  Receipt Date: 20080214
  Transmission Date: 20080703
  Serious: Yes (Hospitalization)
  Sender: FDA-Public Use
  Company Number: A0709970A

PATIENT
  Age: 9 Year
  Sex: Male

DRUGS (1)
  1. WELLBUTRIN XL [Suspect]
     Indication: DEPRESSION
     Dosage: 1 TABLET/ PER DAYL/ORAL
     Route: 048
     Dates: start: 20071201

REACTIONS (4)
  - CONDITION AGGRAVATED [None]
  - ILL-DEFINED DISORDER [None]
  - INSOMNIA [None]
  - SUICIDAL IDEATION [None]
